FAERS Safety Report 9733614 (Version 1)
Quarter: 2013Q4

REPORT INFORMATION
  Report Type: Spontaneous
  Country: US (occurrence: US)
  Receive Date: 20131205
  Receipt Date: 20131205
  Transmission Date: 20140711
  Serious: Yes (Other)
  Sender: FDA-Public Use
  Company Number: CHPA2013US017883

PATIENT
  Age: 54 Year
  Sex: Female

DRUGS (4)
  1. CONTROL PLP [Suspect]
     Indication: SMOKING CESSATION THERAPY
     Dosage: 14 MG, QD
     Route: 062
  2. PRIVATE LABEL [Suspect]
     Indication: SMOKING CESSATION THERAPY
     Dosage: 21 MG, QD
     Route: 062
  3. PRIVATE LABEL [Suspect]
     Dosage: 14 MG, QD
     Route: 062
  4. PRIVATE LABEL [Suspect]
     Dosage: 7 MG, QD
     Route: 062

REACTIONS (4)
  - Herpes virus infection [Recovered/Resolved]
  - Incorrect dose administered [Unknown]
  - Treatment noncompliance [Unknown]
  - Overdose [Unknown]
